FAERS Safety Report 14016864 (Version 1)
Quarter: 2017Q3

REPORT INFORMATION
  Report Type: Spontaneous
  Country: AU (occurrence: AU)
  Receive Date: 20170927
  Receipt Date: 20170927
  Transmission Date: 20171128
  Serious: Yes (Other)
  Sender: FDA-Public Use
  Company Number: AU-CASPER PHARMA LLC-B17-0136-AE

PATIENT
  Age: 15 Year
  Sex: Male

DRUGS (3)
  1. TACROLIMUS. [Concomitant]
     Active Substance: TACROLIMUS
     Indication: KIDNEY TRANSPLANT REJECTION
     Dosage: UNK
     Route: 065
  2. PREDNISOLONE. [Concomitant]
     Active Substance: PREDNISOLONE
     Indication: KIDNEY TRANSPLANT REJECTION
     Dosage: UNK
  3. IMURAN [Suspect]
     Active Substance: AZATHIOPRINE
     Indication: KIDNEY TRANSPLANT REJECTION
     Dosage: 100 MG, QD
     Route: 065
     Dates: start: 201405

REACTIONS (1)
  - Non-cirrhotic portal hypertension [Not Recovered/Not Resolved]
